FAERS Safety Report 8073595-7 (Version None)
Quarter: 2012Q1

REPORT INFORMATION
  Report Type: 
  Country: None (occurrence: None)
  Receive Date: 20120126
  Receipt Date: 20120124
  Transmission Date: 20120608
  Serious: Yes (Life-Threatening, Hospitalization)
  Sender: FDA-Public Use
  Company Number: JP-B.I. PHARMACEUTICALS,INC./RIDGEFIELD-2011-BP-24266NB

PATIENT
  Sex: Female

DRUGS (10)
  1. PRADAXA [Suspect]
     Indication: ATRIAL FIBRILLATION
     Dosage: 220 MG
     Route: 048
     Dates: start: 20110712, end: 20111005
  2. LASIX [Concomitant]
     Indication: CARDIAC FAILURE
     Dosage: 20 MG
     Route: 048
     Dates: start: 20090413, end: 20111005
  3. CARVEDILOL [Concomitant]
     Indication: CARDIAC FAILURE
     Dosage: 5 MG
     Route: 048
     Dates: start: 20100521, end: 20111004
  4. HEPARIN [Suspect]
     Indication: ATRIAL FIBRILLATION
     Dosage: 1600 U
     Route: 042
     Dates: start: 20111005, end: 20111005
  5. ENALAPRIL MALEATE [Concomitant]
     Indication: CARDIAC FAILURE
     Dosage: 10 MG
     Route: 048
     Dates: start: 20090413, end: 20111005
  6. PIROLACTON [Concomitant]
     Indication: CARDIAC FAILURE
     Dosage: 25 MG
     Route: 048
     Dates: start: 20090413, end: 20111005
  7. VERAPAMIL HCL [Concomitant]
     Indication: ATRIAL FIBRILLATION
     Dosage: 240 MG
     Route: 048
     Dates: start: 20111004, end: 20111004
  8. PROTAMINE SULFATE [Suspect]
     Indication: HEPARIN NEUTRALISATION THERAPY
     Dosage: 2 ML
     Route: 042
     Dates: start: 20111005, end: 20111005
  9. DIGOXIN [Concomitant]
     Indication: ATRIAL FIBRILLATION
     Dosage: 0.125 MG
     Route: 048
     Dates: start: 20111005, end: 20111005
  10. LANDEL [Concomitant]
     Dosage: 20 MG
     Route: 048
     Dates: start: 20091225, end: 20111004

REACTIONS (5)
  - ATELECTASIS [None]
  - CARDIAC ARREST [None]
  - SICK SINUS SYNDROME [None]
  - MULTI-ORGAN FAILURE [None]
  - TRACHEAL HAEMORRHAGE [None]
